FAERS Safety Report 6274369-X (Version None)
Quarter: 2009Q3

REPORT INFORMATION
  Report Type: 
  Country: None (occurrence: None)
  Receive Date: 20090720
  Receipt Date: 20090714
  Transmission Date: 20100115
  Serious: Yes (Other)
  Sender: FDA-Public Use
  Company Number: FR-ROXANE LABORATORIES, INC.-2009-RO-00704RO

PATIENT
  Weight: 3 kg

DRUGS (6)
  1. DIGOXIN [Suspect]
     Indication: TACHYCARDIA FOETAL
     Route: 064
  2. DIGOXIN [Suspect]
     Dosage: 0.5 MG
     Route: 064
  3. AMIODARONE HCL [Suspect]
     Indication: TACHYCARDIA FOETAL
     Route: 064
  4. AMIODARONE HCL [Suspect]
     Route: 064
  5. LEVOTHYROXINE SODIUM [Concomitant]
     Indication: BLOOD THYROID STIMULATING HORMONE INCREASED
  6. LEVOTHYROXINE SODIUM [Concomitant]
     Indication: GOITRE

REACTIONS (3)
  - BLOOD THYROID STIMULATING HORMONE INCREASED [None]
  - DRUG INEFFECTIVE [None]
  - GOITRE [None]
